FAERS Safety Report 5429051-5 (Version None)
Quarter: 2007Q3

REPORT INFORMATION
  Report Type: 
  Country: None (occurrence: None)
  Receive Date: 20070829
  Receipt Date: 20070328
  Transmission Date: 20080115
  Serious: No
  Sender: FDA-Public Use
  Company Number: A0645021A

PATIENT
  Age: 45 Year
  Sex: Female

DRUGS (2)
  1. MALARONE [Suspect]
     Indication: MALARIA
     Route: 048
     Dates: start: 20060701, end: 20060801
  2. TETANUS VACCINE [Concomitant]

REACTIONS (1)
  - TINNITUS [None]
